FAERS Safety Report 18493873 (Version 1)
Quarter: 2020Q4

REPORT INFORMATION
  Report Type: Spontaneous
  Country: TW (occurrence: TW)
  Receive Date: 20201112
  Receipt Date: 20201112
  Transmission Date: 20210114
  Serious: Yes (Death, Hospitalization)
  Sender: FDA-Public Use
  Company Number: TW-ORION CORPORATION ORION PHARMA-TREX2020-2272

PATIENT
  Age: 83 Year
  Sex: Female

DRUGS (13)
  1. CHOLECALCIFEROL [Suspect]
     Active Substance: CHOLECALCIFEROL
     Indication: SJOGREN^S SYNDROME
     Route: 065
     Dates: start: 202008, end: 20201008
  2. PROLIA [Suspect]
     Active Substance: DENOSUMAB
     Indication: SJOGREN^S SYNDROME
     Dosage: 60MG SYRINGE,  BEFORE SURGERY
     Route: 058
     Dates: start: 20201015
  3. TRICALCIUM PHOSPHATE [Suspect]
     Active Substance: TRICALCIUM PHOSPHATE
     Indication: SJOGREN^S SYNDROME
     Route: 065
     Dates: start: 202008, end: 20201008
  4. PROLIA [Suspect]
     Active Substance: DENOSUMAB
     Indication: OSTEOPOROSIS
  5. FORTEO [Suspect]
     Active Substance: TERIPARATIDE
     Indication: OSTEOPOROSIS
  6. TREXAN [METHOTREXATE] [Suspect]
     Active Substance: METHOTREXATE
     Indication: OSTEOPOROSIS
  7. FOLIC ACID. [Suspect]
     Active Substance: FOLIC ACID
     Indication: SJOGREN^S SYNDROME
     Route: 065
     Dates: start: 202008, end: 20201008
  8. FORTEO [Suspect]
     Active Substance: TERIPARATIDE
     Indication: SJOGREN^S SYNDROME
     Dosage: 250MCG/ML 2.4ML
     Route: 058
     Dates: start: 20201015
  9. HYDROXYCHLOROQUINE [Suspect]
     Active Substance: HYDROXYCHLOROQUINE
     Indication: SJOGREN^S SYNDROME
     Route: 065
     Dates: start: 202008, end: 20201008
  10. ENTECAVIR. [Suspect]
     Active Substance: ENTECAVIR
     Indication: HEPATITIS ACUTE
     Route: 065
     Dates: start: 20201020
  11. TREXAN [METHOTREXATE] [Suspect]
     Active Substance: METHOTREXATE
     Indication: SJOGREN^S SYNDROME
     Dosage: STRENGTH: 2.5 MG
     Route: 048
     Dates: start: 202008, end: 20201008
  12. PREDNISOLONE. [Suspect]
     Active Substance: PREDNISOLONE
     Indication: SJOGREN^S SYNDROME
     Route: 065
     Dates: start: 202008, end: 20201008
  13. VITAMIN K1 [Suspect]
     Active Substance: PHYTONADIONE
     Indication: PROTHROMBIN TIME PROLONGED
     Dosage: 10MG/AMP QD
     Route: 065
     Dates: start: 20201020

REACTIONS (7)
  - Asthma [Fatal]
  - Hepatic failure [Fatal]
  - Hypotension [Fatal]
  - Jaundice [Fatal]
  - Hepatitis acute [Fatal]
  - Respiratory failure [Fatal]
  - Product use in unapproved indication [Unknown]

NARRATIVE: CASE EVENT DATE: 202008
